FAERS Safety Report 7854769-4 (Version None)
Quarter: 2011Q4

REPORT INFORMATION
  Report Type: 
  Country: None (occurrence: None)
  Receive Date: 20111026
  Receipt Date: 20110817
  Transmission Date: 20120403
  Serious: No
  Sender: FDA-Public Use
  Company Number: US-MUTUAL PHARMACEUTICAL COMPANY, INC.-CLHC20110022

PATIENT
  Sex: Male
  Weight: 204.3 kg

DRUGS (6)
  1. COLCHICINE [Suspect]
     Route: 048
     Dates: start: 20110804, end: 20110804
  2. COLCHICINE [Suspect]
     Route: 048
     Dates: start: 20110805, end: 20110805
  3. COLCHICINE [Suspect]
     Route: 048
     Dates: start: 20110807, end: 20110807
  4. NONE [Concomitant]
  5. COLCHICINE [Suspect]
     Indication: GOUT
     Route: 048
     Dates: start: 19980101, end: 20110803
  6. COLCHICINE [Suspect]
     Route: 048
     Dates: start: 20110806, end: 20110806

REACTIONS (4)
  - NAUSEA [None]
  - BLOOD URINE PRESENT [None]
  - VOMITING [None]
  - URINARY RETENTION [None]
